FAERS Safety Report 22535626 (Version 2)
Quarter: 2023Q2

REPORT INFORMATION
  Report Type: Report from Study
  Country: ES (occurrence: ES)
  Receive Date: 20230608
  Receipt Date: 20230616
  Transmission Date: 20230721
  Serious: Yes (Hospitalization)
  Sender: FDA-Public Use
  Company Number: ES-GLAXOSMITHKLINE-ES2023GSK078316

PATIENT

DRUGS (13)
  1. ATEZOLIZUMAB [Suspect]
     Active Substance: ATEZOLIZUMAB
     Indication: Ovarian epithelial cancer
     Dosage: 1200 MG
     Route: 042
     Dates: start: 20190205, end: 20221125
  2. DOXORUBICIN [Suspect]
     Active Substance: DOXORUBICIN
     Indication: Ovarian epithelial cancer
     Dosage: 1200 MG
     Route: 042
     Dates: start: 20190205, end: 20221125
  3. NIRAPARIB [Suspect]
     Active Substance: NIRAPARIB
     Indication: Ovarian epithelial cancer
     Dosage: 1200 MG
     Route: 042
     Dates: start: 20190205, end: 20221125
  4. PLACEBO [Suspect]
     Active Substance: UNSPECIFIED INGREDIENT
     Indication: Ovarian epithelial cancer
     Dosage: 1200 MG
     Route: 042
     Dates: start: 20190205, end: 20221125
  5. ENALAPRIL [Concomitant]
     Active Substance: ENALAPRIL
     Indication: Hypertension
     Dosage: 5 MG
     Route: 048
     Dates: start: 20220204
  6. ACETAMINOPHEN [Concomitant]
     Active Substance: ACETAMINOPHEN
     Indication: Prophylaxis
     Dosage: 1000 MG
     Route: 048
     Dates: start: 20101028
  7. METAMIZOLE [Concomitant]
     Active Substance: METAMIZOLE
     Indication: Osteoarthritis
     Dosage: 575 MG
     Route: 048
     Dates: start: 20190614
  8. CLONAZEPAM [Concomitant]
     Active Substance: CLONAZEPAM
     Indication: Reactive attachment disorder
     Dosage: 1 MG
     Route: 048
     Dates: start: 20190620
  9. CLONAZEPAM [Concomitant]
     Active Substance: CLONAZEPAM
     Dosage: 1 MG
     Route: 042
     Dates: start: 20230516, end: 20230517
  10. SIMVASTATIN [Concomitant]
     Active Substance: SIMVASTATIN
     Indication: Dyslipidaemia
     Dosage: 40 MG
     Route: 048
     Dates: start: 20100323
  11. OMEPRAZOLE [Concomitant]
     Active Substance: OMEPRAZOLE
     Indication: Prophylaxis
     Dosage: 20 MG
     Route: 048
     Dates: start: 20220314
  12. DOMPERIDONE [Concomitant]
     Active Substance: DOMPERIDONE
     Indication: Product used for unknown indication
     Dosage: 10 MG
     Route: 048
     Dates: start: 20220314
  13. TRAZODONE [Concomitant]
     Active Substance: TRAZODONE HYDROCHLORIDE
     Indication: Anxiety
     Dosage: 50 MG
     Route: 048
     Dates: start: 20200711

REACTIONS (1)
  - Limbic encephalitis [Not Recovered/Not Resolved]

NARRATIVE: CASE EVENT DATE: 20230516
